FAERS Safety Report 5231360-X (Version None)
Quarter: 2007Q1

REPORT INFORMATION
  Report Type: 
  Country: None (occurrence: None)
  Receive Date: 20070205
  Receipt Date: 20070205
  Transmission Date: 20070707
  Serious: Yes (Other)
  Sender: FDA-Public Use
  Company Number: None

PATIENT
  Sex: Male
  Weight: 97.977 kg

DRUGS (1)
  1. HYTRIN [Suspect]
     Indication: BENIGN PROSTATIC HYPERPLASIA
     Dosage: 10 MG   ONE DAILY  ORAL   (DURATION: YEARS)
     Route: 048

REACTIONS (3)
  - ANURIA [None]
  - DRUG INEFFECTIVE [None]
  - DRUG INTOLERANCE [None]
